FAERS Safety Report 6062052-5 (Version None)
Quarter: 2009Q1

REPORT INFORMATION
  Report Type: 
  Country: None (occurrence: None)
  Receive Date: 20090202
  Receipt Date: 20090129
  Transmission Date: 20090719
  Serious: Yes (Death, Life-Threatening)
  Sender: FDA-Public Use
  Company Number: HU-ASTRAZENECA-2009AC00467

PATIENT
  Age: 42 Year
  Sex: Female

DRUGS (1)
  1. DIPRIVAN [Suspect]
     Dosage: 14 AMPOULES OF 200 MG/20ML, TWO FULL SYRINGES (20 ML)
     Route: 042

REACTIONS (4)
  - ACCIDENTAL OVERDOSE [None]
  - DRUG TOXICITY [None]
  - INCORRECT DRUG ADMINISTRATION RATE [None]
  - RESPIRATORY DEPRESSION [None]
